FAERS Safety Report 24651613 (Version 1)
Quarter: 2024Q4

REPORT INFORMATION
  Report Type: Spontaneous
  Country: FR (occurrence: FR)
  Receive Date: 20241122
  Receipt Date: 20241122
  Transmission Date: 20250115
  Serious: Yes (Other)
  Sender: RANBAXY
  Company Number: FR-SUN PHARMACEUTICAL INDUSTRIES LTD-2024RR-479638

PATIENT
  Age: 12 Year
  Sex: Male
  Weight: 66 kg

DRUGS (3)
  1. PANTOPRAZOLE [Suspect]
     Active Substance: PANTOPRAZOLE
     Indication: Haemorrhage prophylaxis
     Dosage: 40 MILLIGRAM, DAILY
     Route: 040
     Dates: start: 20240911, end: 20240930
  2. AMOXICILLIN [Suspect]
     Active Substance: AMOXICILLIN
     Indication: Brain empyema
     Dosage: 2 GRAM, QID
     Route: 040
     Dates: start: 20240919, end: 20241002
  3. CEFEPIME [Suspect]
     Active Substance: CEFEPIME HYDROCHLORIDE
     Indication: Brain empyema
     Dosage: 2 GRAM, BID
     Route: 040
     Dates: start: 20240925, end: 20241002

REACTIONS (1)
  - Acute kidney injury [Not Recovered/Not Resolved]

NARRATIVE: CASE EVENT DATE: 20240929
